FAERS Safety Report 5776727-6 (Version None)
Quarter: 2008Q2

REPORT INFORMATION
  Report Type: 
  Country: None (occurrence: None)
  Receive Date: 20080618
  Receipt Date: 20080222
  Transmission Date: 20081010
  Serious: No
  Sender: FDA-Public Use
  Company Number: US-ASTRAZENECA-2008UW03818

PATIENT
  Age: 52 Year
  Sex: Female
  Weight: 56.7 kg

DRUGS (8)
  1. SYMBICORT [Suspect]
     Indication: PNEUMONIA
     Dosage: 160/4.5  2 PUFFS
     Route: 055
  2. RITALIN [Concomitant]
  3. LEVAQUIN [Concomitant]
  4. SPIRIVA [Concomitant]
  5. PROZAC [Concomitant]
  6. DIAZEPAM [Concomitant]
  7. TEMAZEPAM [Concomitant]
  8. ADVIL [Concomitant]

REACTIONS (5)
  - BONE PAIN [None]
  - FEELING ABNORMAL [None]
  - HEADACHE [None]
  - NERVOUSNESS [None]
  - PAIN [None]
